FAERS Safety Report 9014163 (Version 2)
Quarter: 2013Q1

REPORT INFORMATION
  Report Type: Spontaneous
  Country: DE (occurrence: DE)
  Receive Date: 20130115
  Receipt Date: 20130205
  Transmission Date: 20140127
  Serious: Yes (Death)
  Sender: FDA-Public Use
  Company Number: DE-JNJFOC-20130105408

PATIENT
  Sex: 0

DRUGS (3)
  1. ETOMIDATE [Suspect]
     Indication: GENERAL ANAESTHESIA
     Route: 065
  2. TRAMADOL [Suspect]
     Indication: OPIATES
     Route: 065
  3. FENTANYL [Suspect]
     Indication: OPIATES
     Route: 065

REACTIONS (1)
  - Toxicity to various agents [Fatal]
